FAERS Safety Report 23485032 (Version 1)
Quarter: 2024Q1

REPORT INFORMATION
  Report Type: Report from Study
  Country: JP (occurrence: JP)
  Receive Date: 20240206
  Receipt Date: 20240206
  Transmission Date: 20240410
  Serious: Yes (Other)
  Sender: FDA-Public Use
  Company Number: JP-SA-2023SA305112

PATIENT
  Age: 63 Year
  Sex: Female
  Weight: 43 kg

DRUGS (10)
  1. VANDETANIB [Suspect]
     Active Substance: VANDETANIB
     Indication: Medullary thyroid cancer
     Dosage: DAILY DOSE: 300 MG
     Route: 048
     Dates: start: 20220826, end: 20220915
  2. VANDETANIB [Suspect]
     Active Substance: VANDETANIB
     Dosage: DAILY DOSE: 300 MG
     Route: 048
     Dates: start: 20220922, end: 20221018
  3. VANDETANIB [Suspect]
     Active Substance: VANDETANIB
     Dosage: DAILY DOSE: 200 MG
     Route: 048
     Dates: start: 20221102, end: 20230125
  4. GASTER [Concomitant]
     Active Substance: FAMOTIDINE
     Indication: Prophylaxis
     Dosage: DAILY DOSE: 40 MG 2T/DAY
     Route: 048
     Dates: start: 20220825
  5. CALCIUM CARBONATE\CHOLECALCIFEROL\MAGNESIUM CARBONATE [Concomitant]
     Active Substance: CALCIUM CARBONATE\CHOLECALCIFEROL\MAGNESIUM CARBONATE
     Indication: Prophylaxis
     Dosage: 2 TABLETS/DAY
     Route: 048
     Dates: start: 20220829
  6. CALONAL [Concomitant]
     Active Substance: ACETAMINOPHEN
     Indication: Pain
     Dosage: 8 TABLETS/DAY
     Route: 048
  7. DICLOFENAC SODIUM [Concomitant]
     Active Substance: DICLOFENAC\DICLOFENAC SODIUM
     Indication: Pain
     Dosage: 1 SHEET/DAY
     Route: 061
  8. PARAFFIN [Concomitant]
     Active Substance: PARAFFIN
     Indication: Prophylaxis
     Dosage: APPROPRIATE DOSE, PRN
     Route: 065
     Dates: start: 20220922, end: 20221003
  9. HYALURONATE SODIUM [Concomitant]
     Active Substance: HYALURONATE SODIUM
     Indication: Prophylaxis
     Dosage: UNK, TID
     Route: 047
     Dates: start: 20220922, end: 20221018
  10. HEPARINOID [Concomitant]
     Indication: Pain prophylaxis
     Dosage: UNK, BID
     Route: 065
     Dates: start: 20221019, end: 20230119

REACTIONS (11)
  - Hypokalaemia [Recovered/Resolved]
  - Inflammation [Recovered/Resolved]
  - Inflammation [Recovered/Resolved]
  - Hypoalbuminaemia [Recovered/Resolved]
  - Cystitis [Recovered/Resolved]
  - Eczema [Recovered/Resolved]
  - Pain [Recovered/Resolved]
  - Hypocalcaemia [Recovered/Resolved]
  - Pyrexia [Recovered/Resolved]
  - Stomatitis [Recovered/Resolved]
  - Nausea [Recovered/Resolved]

NARRATIVE: CASE EVENT DATE: 20220916
